FAERS Safety Report 5045247-9 (Version None)
Quarter: 2006Q3

REPORT INFORMATION
  Report Type: 
  Country: None (occurrence: None)
  Receive Date: 20060705
  Receipt Date: 20060614
  Transmission Date: 20061208
  Serious: Yes (Other)
  Sender: FDA-Public Use
  Company Number: US200606004417

PATIENT
  Sex: Female

DRUGS (1)
  1. ZYPREXA [Suspect]

REACTIONS (4)
  - CARDIOMEGALY [None]
  - DIABETES MELLITUS [None]
  - RENAL FAILURE [None]
  - WEIGHT INCREASED [None]
